FAERS Safety Report 18351302 (Version 1)
Quarter: 2020Q4

REPORT INFORMATION
  Report Type: Spontaneous
  Country: US (occurrence: US)
  Receive Date: 20201006
  Receipt Date: 20201006
  Transmission Date: 20210114
  Serious: No
  Sender: FDA-Public Use
  Company Number: US-JNJFOC-20200948543

PATIENT
  Sex: Female

DRUGS (1)
  1. SPRAVATO [Suspect]
     Active Substance: ESKETAMINE
     Indication: DEPRESSION
     Route: 065

REACTIONS (9)
  - Anxiety [Unknown]
  - Dissociation [Unknown]
  - Emotional disorder [Unknown]
  - Crying [Unknown]
  - Irritability [Unknown]
  - Panic attack [Unknown]
  - Agitation [Unknown]
  - Erythema [Unknown]
  - Blood pressure increased [Unknown]
